FAERS Safety Report 6752309-4 (Version None)
Quarter: 2010Q2

REPORT INFORMATION
  Report Type: 
  Country: None (occurrence: None)
  Receive Date: 20100602
  Receipt Date: 20100527
  Transmission Date: 20101027
  Serious: No
  Sender: FDA-Public Use
  Company Number: US-JNJFOC-20100510863

PATIENT
  Sex: Male
  Weight: 151.96 kg

DRUGS (1)
  1. FENTANYL CITRATE [Suspect]
     Indication: PAIN
     Route: 062
     Dates: start: 20100501

REACTIONS (1)
  - WRONG TECHNIQUE IN DRUG USAGE PROCESS [None]
